FAERS Safety Report 5774148-3 (Version None)
Quarter: 2008Q2

REPORT INFORMATION
  Report Type: 
  Country: None (occurrence: None)
  Receive Date: 20080601
  Receipt Date: 20080111
  Transmission Date: 20081010
  Serious: No
  Sender: FDA-Public Use
  Company Number: US200710003883

PATIENT
  Age: 66 Year
  Sex: Female
  Weight: 89.8 kg

DRUGS (16)
  1. BYETTA [Suspect]
     Indication: TYPE 2 DIABETES MELLITUS
     Dosage: 5 UG, 2/D, SUBCUTANEOUS ; 10 UG, 2/D, SUBCUTANEOUS
     Route: 058
     Dates: start: 20070601, end: 20070901
  2. BYETTA [Suspect]
     Indication: TYPE 2 DIABETES MELLITUS
     Dosage: 5 UG, 2/D, SUBCUTANEOUS ; 10 UG, 2/D, SUBCUTANEOUS
     Route: 058
     Dates: start: 20070901
  3. METFORMIN HCL [Concomitant]
  4. ACTOS [Concomitant]
  5. VITAMIN D [Concomitant]
  6. GLIMEPIRIDE [Concomitant]
  7. LISINOPRIL [Concomitant]
  8. METOPROLOL TARTRATE [Concomitant]
  9. CRESTOR [Concomitant]
  10. TRICOR [Concomitant]
  11. ASPIRIN [Concomitant]
  12. IRON (IRON) [Concomitant]
  13. ONE-A-DAY WOMEN'S (ACACIA SENEGAL, ASCORBIC ACID, BETACAROTENE, CALCIU [Concomitant]
  14. COQ10 (UBIDECARENONE) [Concomitant]
  15. ACIPHEX [Concomitant]
  16. IMODIUM [Concomitant]

REACTIONS (8)
  - BLOOD GLUCOSE INCREASED [None]
  - DECREASED APPETITE [None]
  - DIARRHOEA [None]
  - DRUG INEFFECTIVE [None]
  - GASTROOESOPHAGEAL REFLUX DISEASE [None]
  - HEPATIC STEATOSIS [None]
  - MEMORY IMPAIRMENT [None]
  - WEIGHT INCREASED [None]
